FAERS Safety Report 23994816 (Version 2)
Quarter: 2024Q3

REPORT INFORMATION
  Report Type: Spontaneous
  Country: FR (occurrence: FR)
  Receive Date: 20240620
  Receipt Date: 20240814
  Transmission Date: 20241017
  Serious: Yes (Death, Life-Threatening, Hospitalization, Other)
  Sender: PFIZER
  Company Number: FR-GILEAD-2024-0675948

PATIENT
  Sex: Male
  Weight: 171 kg

DRUGS (3)
  1. GEMCITABINE HYDROCHLORIDE [Suspect]
     Active Substance: GEMCITABINE HYDROCHLORIDE
     Indication: Transitional cell carcinoma metastatic
     Dosage: 1901.15 MG, CYCLE DAY 1 AND DAY 8
     Route: 042
     Dates: start: 20240517, end: 20240524
  2. CARBOPLATIN [Suspect]
     Active Substance: CARBOPLATIN
     Indication: Transitional cell carcinoma metastatic
     Dosage: 310 MG
     Route: 042
     Dates: start: 20240517, end: 20240524
  3. SACITUZUMAB GOVITECAN [Suspect]
     Active Substance: SACITUZUMAB GOVITECAN
     Indication: Transitional cell carcinoma metastatic
     Dosage: UNK

REACTIONS (3)
  - Thrombocytopenia [Fatal]
  - Neutrophil count decreased [Unknown]
  - Off label use [Unknown]

NARRATIVE: CASE EVENT DATE: 20240517
